FAERS Safety Report 14229605 (Version 2)
Quarter: 2018Q1

REPORT INFORMATION
  Report Type: Report from Study
  Country: None (occurrence: ES)
  Receive Date: 20171128
  Receipt Date: 20180306
  Transmission Date: 20180508
  Serious: Yes (Hospitalization)
  Sender: FDA-Public Use
  Company Number: ES-ABBVIE-17K-144-2170941-00

PATIENT
  Age: 43 Year
  Sex: Female
  Weight: 90 kg

DRUGS (8)
  1. HUMIRA [Suspect]
     Active Substance: ADALIMUMAB
     Indication: PSORIASIS
     Route: 058
     Dates: start: 20160501, end: 201705
  2. LOPID [Concomitant]
     Active Substance: GEMFIBROZIL
     Indication: BLOOD CHOLESTEROL ABNORMAL
     Route: 048
  3. FLUOXETINE [Concomitant]
     Active Substance: FLUOXETINE HYDROCHLORIDE
     Indication: ANTIDEPRESSANT THERAPY
     Route: 048
  4. IXIA PLUS [Concomitant]
     Active Substance: HYDROCHLOROTHIAZIDE\OLMESARTAN MEDOXOMIL
     Indication: HYPERTENSION
     Dosage: 40/12.5
  5. DIAZEPAM. [Concomitant]
     Active Substance: DIAZEPAM
     Indication: NERVOUSNESS
     Route: 048
  6. NOLOTIL (METAMIZOLE\PROPOXYPHENE) [Concomitant]
     Active Substance: METAMIZOLE\PROPOXYPHENE
     Indication: PAIN
     Route: 048
  7. HUMIRA [Suspect]
     Active Substance: ADALIMUMAB
     Indication: PSORIASIS
     Route: 058
     Dates: start: 201705
  8. LECIBRAL [Concomitant]
     Indication: HYPERTENSION
     Route: 048

REACTIONS (5)
  - Diarrhoea [Not Recovered/Not Resolved]
  - Anal fistula [Recovered/Resolved]
  - Anal fistula [Recovered/Resolved]
  - Anal abscess [Recovered/Resolved]
  - Headache [Not Recovered/Not Resolved]

NARRATIVE: CASE EVENT DATE: 201710
